FAERS Safety Report 9485844 (Version 2)
Quarter: 2013Q4

REPORT INFORMATION
  Report Type: Spontaneous
  Country: DE (occurrence: DE)
  Receive Date: 20130829
  Receipt Date: 20131023
  Transmission Date: 20140711
  Serious: Yes (Hospitalization, Other)
  Sender: FDA-Public Use
  Company Number: PHHY2013DE093564

PATIENT
  Age: 27 Year
  Sex: Male

DRUGS (6)
  1. TEGRETAL [Suspect]
     Indication: EPILEPSY
     Dosage: 200 MG, DAILY
  2. TEGRETAL [Suspect]
     Dosage: 800 MG, DAILY
     Dates: start: 2013, end: 2013
  3. TEGRETAL [Suspect]
     Dosage: 600 MG, DAILY
     Dates: start: 201309
  4. TEGRETAL [Suspect]
     Dosage: 200 MG, BID
     Dates: start: 2013
  5. LUMINAL [Concomitant]
     Dosage: 150 MG, DAILY
  6. LUMINAL [Concomitant]
     Dosage: 100 MG, UNK

REACTIONS (16)
  - Cerebral haemorrhage [Unknown]
  - Monoplegia [Recovering/Resolving]
  - Convulsion [Unknown]
  - Hypersomnia [Unknown]
  - Salivary hypersecretion [Recovering/Resolving]
  - Proteinuria [Recovering/Resolving]
  - Haematuria [Recovering/Resolving]
  - Dysphagia [Recovering/Resolving]
  - Hepatic enzyme abnormal [Recovering/Resolving]
  - Eating disorder [Recovering/Resolving]
  - Listless [Recovering/Resolving]
  - Sedation [Recovering/Resolving]
  - Myoclonus [Recovering/Resolving]
  - Blood pressure decreased [Recovering/Resolving]
  - Speech disorder [Recovering/Resolving]
  - Muscular weakness [Recovering/Resolving]
